FAERS Safety Report 4305036-7 (Version None)
Quarter: 2004Q1

REPORT INFORMATION
  Report Type: 
  Country: None (occurrence: None)
  Receive Date: 20040225
  Receipt Date: 20040225
  Transmission Date: 20041129
  Serious: Yes (Life-Threatening, Hospitalization)
  Sender: FDA-Public Use
  Company Number: None

PATIENT
  Age: 20 Year
  Sex: Male
  Weight: 77 kg

DRUGS (2)
  1. ALPRAZOLAM [Suspect]
     Indication: ANXIETY
     Dosage: ~5 TABLETS AND UNKNOWN ABOUT OF ALCOHOL OTO
  2. ALCOHOL [Suspect]

REACTIONS (16)
  - ALCOHOL USE [None]
  - ANXIETY [None]
  - BLOOD PRESSURE DECREASED [None]
  - HEART RATE INCREASED [None]
  - HYPOVENTILATION [None]
  - MEDICATION ERROR [None]
  - MENTAL STATUS CHANGES [None]
  - MIOSIS [None]
  - OVERDOSE [None]
  - PNEUMONIA [None]
  - PNEUMONIA ASPIRATION [None]
  - RESPIRATORY RATE INCREASED [None]
  - SALIVARY HYPERSECRETION [None]
  - SELF-MEDICATION [None]
  - SOMNOLENCE [None]
  - VOMITING [None]
